FAERS Safety Report 24411028 (Version 1)
Quarter: 2024Q4

REPORT INFORMATION
  Report Type: Spontaneous
  Country: US (occurrence: US)
  Receive Date: 20241008
  Receipt Date: 20241008
  Transmission Date: 20250114
  Serious: Yes (Other)
  Sender: BAYER
  Company Number: US-BAYER-2024A137925

PATIENT
  Age: 60 Year
  Sex: Female
  Weight: 59.864 kg

DRUGS (2)
  1. MIRALAX [Suspect]
     Active Substance: POLYETHYLENE GLYCOL 3350
  2. LYTGOBI [Concomitant]
     Active Substance: FUTIBATINIB
     Indication: Cholangiocarcinoma
     Dosage: 4 MG
     Route: 048
     Dates: start: 20240606

REACTIONS (10)
  - Diarrhoea [Not Recovered/Not Resolved]
  - Nausea [Recovered/Resolved]
  - Fatigue [Not Recovered/Not Resolved]
  - Ascites [Not Recovered/Not Resolved]
  - Back pain [None]
  - Vomiting [None]
  - Constipation [Not Recovered/Not Resolved]
  - Weight decreased [None]
  - Waist circumference increased [None]
  - Product packaging difficult to open [None]

NARRATIVE: CASE EVENT DATE: 20240809
